FAERS Safety Report 8419028-X (Version None)
Quarter: 2012Q2

REPORT INFORMATION
  Report Type: 
  Country: None (occurrence: None)
  Receive Date: 20120601
  Receipt Date: 20120521
  Transmission Date: 20120825
  Serious: Yes (Hospitalization)
  Sender: FDA-Public Use
  Company Number: AXC-2012-000208

PATIENT
  Age: 33 Year
  Sex: Male
  Weight: 52.8 kg

DRUGS (16)
  1. COLISTIN (COLISTIN) [Concomitant]
  2. BONIVA [Concomitant]
  3. ALBUTEROL [Concomitant]
  4. CAYSTON [Concomitant]
  5. PULMOZYME [Concomitant]
  6. HYPERSOL B (BUDESONIDE) [Concomitant]
  7. MEPHYTON (PHYTOMENADIONE) [Concomitant]
  8. SPIRIVA [Concomitant]
  9. VITAMIN D [Concomitant]
  10. PRILOSEC [Concomitant]
  11. ACTIGALL [Concomitant]
  12. ZENPEP [Suspect]
     Indication: PANCREATIC INSUFFICIENCY
     Dosage: 8-10 WITH MEALS, ORAL
     Route: 048
     Dates: start: 20100101
  13. ADVAIR HFA [Concomitant]
  14. VANCOMYCIN [Concomitant]
  15. ZITHROMAX [Concomitant]
  16. CALCIUM CARBONATE [Concomitant]

REACTIONS (2)
  - DISTAL ILEAL OBSTRUCTION SYNDROME [None]
  - CONSTIPATION [None]
